FAERS Safety Report 15663094 (Version 4)
Quarter: 2019Q1

REPORT INFORMATION
  Report Type: Spontaneous
  Country: GB (occurrence: GB)
  Receive Date: 20181128
  Receipt Date: 20190207
  Transmission Date: 20190417
  Serious: Yes (Hospitalization, Other)
  Sender: FDA-Public Use
  Company Number: GB-AUROBINDO-AUR-APL-2018-051670

PATIENT

DRUGS (6)
  1. ARIPIPRAZOLE TABLETS [Suspect]
     Active Substance: ARIPIPRAZOLE
     Indication: SCHIZOPHRENIA
     Dosage: UNK
     Route: 065
  2. PHOSPHATE [Concomitant]
     Active Substance: UNSPECIFIED INGREDIENT
     Indication: BLOOD PHOSPHORUS DECREASED
     Dosage: UNK
     Route: 065
  3. CLOPIXOL [Suspect]
     Active Substance: ZUCLOPENTHIXOL
     Indication: SCHIZOPHRENIA
     Dosage: 500 MILLIGRAM, EVERY WEEK, 500 MG DEPOT WEEKLY
     Route: 065
     Dates: start: 201709
  4. VITAMIN B12 [Concomitant]
     Active Substance: CYANOCOBALAMIN
     Indication: VITAMIN B12 DECREASED
     Dosage: UNK (3 MONTH)
     Route: 065
  5. CLOPIXOL [Suspect]
     Active Substance: ZUCLOPENTHIXOL
     Dosage: 600 MILLIGRAM, EVERY WEEK, 1 WEEK
     Route: 065
     Dates: start: 201709
  6. ACICLOVIR [Concomitant]
     Active Substance: ACYCLOVIR
     Indication: ENCEPHALITIS
     Dosage: UNK (2 DAY)
     Route: 065

REACTIONS (30)
  - Heart rate increased [Unknown]
  - Aggression [Unknown]
  - Abdominal discomfort [Unknown]
  - Hypertonia [Unknown]
  - Dysuria [Unknown]
  - Cognitive disorder [Recovering/Resolving]
  - C-reactive protein increased [Unknown]
  - Dizziness [Unknown]
  - Sinus tachycardia [Unknown]
  - Vitamin B12 decreased [Unknown]
  - Tachypnoea [Unknown]
  - Blood phosphorus decreased [Unknown]
  - Anal incontinence [Unknown]
  - Disorientation [Unknown]
  - Headache [Unknown]
  - Urinary incontinence [Unknown]
  - Abnormal behaviour [Unknown]
  - Malaise [Unknown]
  - Hyperhidrosis [Unknown]
  - White blood cell count increased [Unknown]
  - Urine odour abnormal [Unknown]
  - Neuroleptic malignant syndrome [Recovered/Resolved]
  - Epigastric discomfort [Recovered/Resolved]
  - Encephalitis [Unknown]
  - Loss of personal independence in daily activities [Unknown]
  - Hospitalisation [Recovered/Resolved]
  - Blood creatine increased [Unknown]
  - Diarrhoea [Recovered/Resolved]
  - Blood creatine phosphokinase increased [Unknown]
  - Feeding disorder [Unknown]
